FAERS Safety Report 10816440 (Version 3)
Quarter: 2015Q1

REPORT INFORMATION
  Report Type: Spontaneous
  Country: US (occurrence: US)
  Receive Date: 20150218
  Receipt Date: 20150320
  Transmission Date: 20150721
  Serious: Yes (Hospitalization, Other)
  Sender: FDA-Public Use
  Company Number: US-JNJFOC-20150209304

PATIENT

DRUGS (1)
  1. TAPENTADOL HYDROCHLORIDE [Suspect]
     Active Substance: TAPENTADOL HYDROCHLORIDE
     Indication: PRODUCT USED FOR UNKNOWN INDICATION
     Route: 065

REACTIONS (10)
  - Toxicity to various agents [Unknown]
  - Miosis [Unknown]
  - Medication error [Unknown]
  - Respiratory depression [Unknown]
  - Tachycardia [Unknown]
  - Nausea [Unknown]
  - Suicide attempt [Unknown]
  - Dizziness [Unknown]
  - Vomiting [Unknown]
  - Lethargy [Unknown]
